FAERS Safety Report 23252452 (Version 1)
Quarter: 2023Q4

REPORT INFORMATION
  Report Type: Spontaneous
  Country: US (occurrence: None)
  Receive Date: 20231201
  Receipt Date: 20231201
  Transmission Date: 20240109
  Serious: No
  Sender: FDA-Public Use
  Company Number: None

PATIENT
  Age: 66 Year
  Sex: Male
  Weight: 83.1 kg

DRUGS (3)
  1. CARBOPLATIN [Suspect]
     Active Substance: CARBOPLATIN
     Dates: end: 20231109
  2. TAXOL [Suspect]
     Active Substance: PACLITAXEL
     Dates: end: 20231109
  3. PEMBROLIZUMAB [Suspect]
     Active Substance: PEMBROLIZUMAB
     Dates: end: 20231109

REACTIONS (7)
  - Infusion related reaction [None]
  - Arthritis [None]
  - Asthenia [None]
  - Neuropathy peripheral [None]
  - Walking aid user [None]
  - Retching [None]
  - Refusal of treatment by patient [None]

NARRATIVE: CASE EVENT DATE: 20231109
